FAERS Safety Report 13912992 (Version 1)
Quarter: 2017Q3

REPORT INFORMATION
  Report Type: Not Available
  Country: None (occurrence: US)
  Receive Date: 20170828
  Receipt Date: 20170828
  Transmission Date: 20171127
  Serious: Yes (Other)
  Sender: FDA-Public Use
  Company Number: US-AKORN-59871

PATIENT
  Age: 42 Year
  Sex: Female
  Weight: 77 kg

DRUGS (1)
  1. COGENTIN [Suspect]
     Active Substance: BENZTROPINE MESYLATE

REACTIONS (7)
  - Visual acuity reduced [Unknown]
  - Depression [Not Recovered/Not Resolved]
  - Bipolar disorder [Unknown]
  - Dysarthria [Not Recovered/Not Resolved]
  - Bruxism [Not Recovered/Not Resolved]
  - Drug ineffective [Unknown]
  - Feeling abnormal [Unknown]
